FAERS Safety Report 13761477 (Version 2)
Quarter: 2017Q4

REPORT INFORMATION
  Report Type: Spontaneous
  Country: GB (occurrence: GB)
  Receive Date: 20170717
  Receipt Date: 20171102
  Transmission Date: 20180320
  Serious: Yes (Other)
  Sender: FDA-Public Use
  Company Number: PHFR2017GB005337

PATIENT
  Age: 58 Year
  Sex: Male
  Weight: 71 kg

DRUGS (8)
  1. RAMIPRIL. [Concomitant]
     Active Substance: RAMIPRIL
     Indication: CARDIOMYOPATHY
     Dosage: 1 DF, BID
     Route: 065
     Dates: start: 20170117
  2. XARELTO [Suspect]
     Active Substance: RIVAROXABAN
     Indication: ANTICOAGULANT THERAPY
     Dosage: 1 DF, QD
     Route: 065
     Dates: start: 20170117
  3. BISOPROLOL [Concomitant]
     Active Substance: BISOPROLOL
     Indication: CARDIAC FAILURE
     Dosage: 1 DF, QD (EACH MORNING)
     Route: 065
     Dates: start: 20170306
  4. ATORVASTATIN [Suspect]
     Active Substance: ATORVASTATIN
     Indication: PRODUCT USED FOR UNKNOWN INDICATION
     Dosage: 20 MG, UNK
     Route: 065
     Dates: start: 20170425
  5. HYDRALAZINE [Concomitant]
     Active Substance: HYDRALAZINE HYDROCHLORIDE
     Indication: CARDIAC FAILURE
     Dosage: 1800 DF, BID
     Route: 065
     Dates: start: 20170117
  6. TAMSULOSIN HYDROCHLORIDE. [Concomitant]
     Active Substance: TAMSULOSIN HYDROCHLORIDE
     Indication: BRACHYTHERAPY TO PROSTATE
     Dosage: 1 DF, QD
     Route: 065
     Dates: start: 20170117, end: 20170425
  7. SIMVASTATIN. [Concomitant]
     Active Substance: SIMVASTATIN
     Indication: CARDIAC FAILURE
     Dosage: 1 DF, QD (EACH EVENING)
     Route: 065
     Dates: start: 20170626
  8. SPIRONOLACTONE. [Concomitant]
     Active Substance: SPIRONOLACTONE
     Indication: CARDIAC FAILURE
     Dosage: 1 DF, QD EACH MORNING)
     Route: 065
     Dates: start: 20170117

REACTIONS (3)
  - Contusion [Recovered/Resolved]
  - Paraesthesia [Unknown]
  - Drug interaction [Unknown]

NARRATIVE: CASE EVENT DATE: 20170601
